FAERS Safety Report 14474876 (Version 1)
Quarter: 2018Q1

REPORT INFORMATION
  Report Type: Spontaneous
  Country: US (occurrence: US)
  Receive Date: 20180201
  Receipt Date: 20180201
  Transmission Date: 20180509
  Serious: Yes (Hospitalization, Other)
  Sender: FDA-Public Use
  Company Number: US-MYLANLABS-2018M1006729

PATIENT
  Age: 75 Year
  Sex: Female

DRUGS (2)
  1. ARGATROBAN. [Suspect]
     Active Substance: ARGATROBAN
     Indication: SUBCLAVIAN ARTERY THROMBOSIS
     Dosage: DRIP
     Route: 065
  2. HEPARIN [Suspect]
     Active Substance: HEPARIN SODIUM
     Indication: PRODUCT USED FOR UNKNOWN INDICATION
     Dosage: UNK
     Route: 065

REACTIONS (5)
  - Cerebral haemorrhage [Unknown]
  - Ischaemic stroke [Unknown]
  - Haemorrhagic stroke [Unknown]
  - Respiratory failure [Unknown]
  - Heparin-induced thrombocytopenia [Unknown]
